FAERS Safety Report 4700954-X (Version None)
Quarter: 2005Q2

REPORT INFORMATION
  Report Type: 
  Country: None (occurrence: None)
  Receive Date: 20050624
  Receipt Date: 20050616
  Transmission Date: 20051028
  Serious: Yes (Hospitalization)
  Sender: FDA-Public Use
  Company Number: COV2-2005-00019

PATIENT
  Age: 83 Year
  Sex: Female
  Weight: 86.002 kg

DRUGS (15)
  1. FOSRENOL [Suspect]
     Indication: HYPERPHOSPHATAEMIA
     Dosage: 250 MG 3X/DAY TID ORAL
     Route: 048
     Dates: start: 20050225, end: 20050416
  2. METOPROLOL TARTRATE [Concomitant]
  3. MONOPRIL [Concomitant]
  4. FLUOXETINE [Concomitant]
  5. MEDROXYPROGESTERONE [Concomitant]
  6. PLAVIX [Concomitant]
  7. TRENTAL ^ALBERT-ROUSSEL^ (PENTOXIFYLLINE) [Concomitant]
  8. LEVOXYL [Concomitant]
  9. ISOSORBIDE (ISOSORBIDE) [Concomitant]
  10. LIPITOR [Concomitant]
  11. VITAMIN E [Concomitant]
  12. ASPIRIN [Concomitant]
  13. NEPHROCAPS (FOLIC ACID, VITAMINS NOS) [Concomitant]
  14. FIBERCON (POLYCARBOPHIL CALCIUM) [Concomitant]
  15. TUMS [Concomitant]

REACTIONS (11)
  - BALANCE DISORDER [None]
  - CONFUSIONAL STATE [None]
  - DEMENTIA [None]
  - FALL [None]
  - HAEMOPTYSIS [None]
  - MICROANGIOPATHY [None]
  - MOVEMENT DISORDER [None]
  - NEUROLOGICAL SYMPTOM [None]
  - PRURITUS [None]
  - PULMONARY HYPERTENSION [None]
  - RASH [None]
